FAERS Safety Report 23261077 (Version 1)
Quarter: 2023Q4

REPORT INFORMATION
  Report Type: Report from Study
  Country: IN (occurrence: IN)
  Receive Date: 20231205
  Receipt Date: 20231205
  Transmission Date: 20240110
  Serious: Yes (Other)
  Sender: FDA-Public Use
  Company Number: IN-002147023-NVSC2023IN255352

PATIENT
  Sex: Male

DRUGS (1)
  1. TASIGNA [Suspect]
     Active Substance: NILOTINIB
     Indication: Product used for unknown indication
     Dosage: 300 MG, BID
     Route: 048

REACTIONS (4)
  - Tuberculosis [Unknown]
  - Haemoglobin abnormal [Unknown]
  - Blood immunoglobulin E abnormal [Unknown]
  - Cytogenetic analysis abnormal [Unknown]
